FAERS Safety Report 4827264-4 (Version None)
Quarter: 2005Q4

REPORT INFORMATION
  Report Type: 
  Country: None (occurrence: None)
  Receive Date: 20051114
  Receipt Date: 20051031
  Transmission Date: 20060501
  Serious: Yes (Hospitalization)
  Sender: FDA-Public Use
  Company Number: 2005SE06235

PATIENT
  Age: 66 Year
  Sex: Male

DRUGS (13)
  1. MERONEM [Suspect]
     Indication: INFECTION PARASITIC
     Route: 042
     Dates: start: 20050903, end: 20050910
  2. NEXIUM [Concomitant]
     Route: 048
  3. DIFLUCAN [Concomitant]
  4. CYKLOKAPRON [Concomitant]
     Route: 048
  5. BRICANYL [Concomitant]
     Route: 055
  6. EGAZIL [Concomitant]
     Route: 048
  7. SELOKEN [Concomitant]
     Route: 048
  8. LASIX [Concomitant]
     Route: 048
  9. ENOXAPARIN SODIUM [Concomitant]
  10. ACETYLCYSTEINE [Concomitant]
     Route: 048
  11. OCTOSTIM [Concomitant]
  12. FENTANYL [Concomitant]
  13. PLAVIX [Concomitant]
     Route: 048

REACTIONS (10)
  - ARRHYTHMIA [None]
  - CANDIDIASIS [None]
  - CEREBRAL INFARCTION [None]
  - DUODENAL ULCER HAEMORRHAGE [None]
  - HEPATIC FAILURE [None]
  - MULTI-ORGAN FAILURE [None]
  - PNEUMONIA [None]
  - PROCTITIS [None]
  - RENAL FAILURE [None]
  - RESPIRATORY FAILURE [None]
